FAERS Safety Report 10156757 (Version 1)
Quarter: 2014Q2

REPORT INFORMATION
  Report Type: Spontaneous
  Country: US (occurrence: US)
  Receive Date: 20140507
  Receipt Date: 20140507
  Transmission Date: 20141212
  Serious: Yes (Other)
  Sender: FDA-Public Use
  Company Number: US-ELI_LILLY_AND_COMPANY-US201404009400

PATIENT
  Age: 71 Year
  Sex: Female

DRUGS (7)
  1. HUMULIN 30% REGULAR, 70% NPH [Suspect]
     Indication: DIABETES MELLITUS
     Dosage: 50 U, BID
     Route: 065
  2. HUMULIN 30% REGULAR, 70% NPH [Suspect]
     Dosage: 30 U, BID
     Route: 065
  3. HUMULIN 30% REGULAR, 70% NPH [Suspect]
     Indication: DIABETES MELLITUS
     Dosage: 30 U, BID
     Route: 065
  4. TAMOXEN [Concomitant]
  5. LIPITOR [Concomitant]
  6. NORVASC [Concomitant]
  7. WELLBUTRIN [Concomitant]

REACTIONS (4)
  - Neoplasm malignant [Unknown]
  - Visual acuity reduced [Not Recovered/Not Resolved]
  - Eye pain [Unknown]
  - Blood glucose decreased [Unknown]
